FAERS Safety Report 14452276 (Version 1)
Quarter: 2018Q1

REPORT INFORMATION
  Report Type: Spontaneous
  Country: US (occurrence: US)
  Receive Date: 20180129
  Receipt Date: 20180129
  Transmission Date: 20180509
  Serious: Yes (Other)
  Sender: FDA-Public Use
  Company Number: US-BIOGEN-2018BI00515968

PATIENT
  Age: 47 Year
  Sex: Male

DRUGS (1)
  1. TECFIDERA [Suspect]
     Active Substance: DIMETHYL FUMARATE
     Indication: MULTIPLE SCLEROSIS
     Route: 065

REACTIONS (5)
  - Malaise [Recovered/Resolved]
  - Decreased immune responsiveness [Recovered/Resolved]
  - Asthenia [Recovered/Resolved]
  - Ear infection [Recovered/Resolved]
  - Hemiplegia [Recovered/Resolved]
